FAERS Safety Report 24005027 (Version 1)
Quarter: 2024Q2

REPORT INFORMATION
  Report Type: Spontaneous
  Country: US (occurrence: US)
  Receive Date: 20240624
  Receipt Date: 20240624
  Transmission Date: 20240715
  Serious: Yes (Hospitalization)
  Sender: FDA-Public Use
  Company Number: US-AMGEN-USASP2024121545

PATIENT
  Age: 54 Year
  Sex: Female

DRUGS (4)
  1. PREDNISONE [Suspect]
     Active Substance: PREDNISONE
     Indication: Emphysema
     Dosage: UNK
     Route: 065
     Dates: start: 2022
  2. PREDNISONE [Suspect]
     Active Substance: PREDNISONE
     Indication: Bronchopulmonary aspergillosis allergic
  3. PREDNISONE [Suspect]
     Active Substance: PREDNISONE
     Indication: Asthma
  4. PREDNISONE [Suspect]
     Active Substance: PREDNISONE
     Indication: Chronic obstructive pulmonary disease

REACTIONS (5)
  - Emphysema [Recovered/Resolved]
  - Bronchopulmonary aspergillosis allergic [Recovered/Resolved]
  - Asthma [Recovered/Resolved]
  - Chronic obstructive pulmonary disease [Recovered/Resolved]
  - Candida test positive [Recovered/Resolved]

NARRATIVE: CASE EVENT DATE: 20221001
